FAERS Safety Report 7941298-2 (Version None)
Quarter: 2011Q4

REPORT INFORMATION
  Report Type: 
  Country: None (occurrence: None)
  Receive Date: 20111122
  Receipt Date: 20111122
  Transmission Date: 20120403
  Serious: Yes (Other)
  Sender: FDA-Public Use
  Company Number: None

PATIENT
  Sex: Female

DRUGS (1)
  1. GILENYA [Suspect]
     Indication: MULTIPLE SCLEROSIS
     Dosage: 10MG DAILY PO
     Route: 048
     Dates: start: 20110927

REACTIONS (3)
  - DIZZINESS [None]
  - SYNCOPE [None]
  - BLOOD PRESSURE INCREASED [None]
